FAERS Safety Report 17628882 (Version 1)
Quarter: 2020Q2

REPORT INFORMATION
  Report Type: Spontaneous
  Country: GB (occurrence: GB)
  Receive Date: 20200406
  Receipt Date: 20200406
  Transmission Date: 20200713
  Serious: Yes (Hospitalization)
  Sender: FDA-Public Use
  Company Number: GB-TEVA-2020-GB-1218302

PATIENT
  Age: 82 Year
  Sex: Male

DRUGS (6)
  1. ALLOPURINOL. [Concomitant]
     Active Substance: ALLOPURINOL
     Dosage: MORNING , 100 MG 1 DAYS
     Route: 048
  2. SIMVASTATIN. [Concomitant]
     Active Substance: SIMVASTATIN
     Dosage: NIGHT , 40 MG 1 DAYS
     Route: 048
  3. SERTRALINE [Concomitant]
     Active Substance: SERTRALINE HYDROCHLORIDE
     Dosage: MORNING , 100 MG 1 DAYS
     Route: 048
  4. WARFARIN [Concomitant]
     Active Substance: WARFARIN
     Dosage: 3MG ONCE DAILY MORNING (OM) EXCEPT SUNDAY 4MG
     Route: 048
  5. BISOPROLOL [Suspect]
     Active Substance: BISOPROLOL
     Indication: HYPERTENSION
     Dosage: MORNING , 7.5 MG 1 DAYS
     Route: 048
  6. PERINDOPRIL TERT-BUTYLAMINE [Suspect]
     Active Substance: PERINDOPRIL ERBUMINE
     Indication: HYPERTENSION
     Dosage: MORNING , 8 MG 1 DAYS
     Route: 048

REACTIONS (3)
  - Haemarthrosis [Unknown]
  - Fall [Recovered/Resolved]
  - Prescribed overdose [Unknown]

NARRATIVE: CASE EVENT DATE: 20190824
